FAERS Safety Report 6128343-4 (Version None)
Quarter: 2009Q1

REPORT INFORMATION
  Report Type: 
  Country: None (occurrence: None)
  Receive Date: 20090323
  Receipt Date: 20090312
  Transmission Date: 20090719
  Serious: Yes (Other)
  Sender: FDA-Public Use
  Company Number: B0563548A

PATIENT
  Age: 45 Year
  Sex: Male

DRUGS (1)
  1. ELONTRIL [Suspect]
     Indication: MAJOR DEPRESSION
     Route: 065
     Dates: start: 20090101, end: 20090101

REACTIONS (1)
  - PSORIASIS [None]
